FAERS Safety Report 9434911 (Version 1)
Quarter: 2013Q3

REPORT INFORMATION
  Report Type: Spontaneous
  Country: CA (occurrence: CA)
  Receive Date: 20130801
  Receipt Date: 20130801
  Transmission Date: 20140515
  Serious: Yes (Other)
  Sender: FDA-Public Use
  Company Number: CA-VERTEX PHARMACEUTICALS INC-2013-008444

PATIENT
  Age: 59 Year
  Sex: Male

DRUGS (9)
  1. INCIVEK [Suspect]
     Indication: HEPATITIS C
     Dosage: 750 MG, TID
  2. PEGASYS [Suspect]
     Indication: HEPATITIS C
     Dosage: 90 ?G, QW
  3. PEGASYS [Suspect]
     Dosage: 135 ?G, QW
  4. PEGASYS [Suspect]
     Dosage: 180 ?G, QW
  5. PEGASYS [Suspect]
     Dosage: 90 ?G, QW
  6. RIBAVIRIN [Suspect]
     Indication: HEPATITIS C
     Dosage: 1200 MG, QD
  7. CITALOPRAM [Concomitant]
  8. IMOVANE [Concomitant]
  9. TYLENOL EXTRA STRENGTH [Concomitant]

REACTIONS (2)
  - Neutropenia [Not Recovered/Not Resolved]
  - White blood cell count decreased [Not Recovered/Not Resolved]
